FAERS Safety Report 4615820-8 (Version None)
Quarter: 2005Q1

REPORT INFORMATION
  Report Type: 
  Country: None (occurrence: None)
  Receive Date: 20050317
  Receipt Date: 20050304
  Transmission Date: 20050727
  Serious: Yes (Hospitalization)
  Sender: FDA-Public Use
  Company Number: GXKR2005US00689

PATIENT
  Age: 29 Year
  Sex: Male

DRUGS (4)
  1. DIVALPROEX (NGX)(DIVALPROEX) [Suspect]
     Indication: SCHIZOAFFECTIVE DISORDER
     Dosage: ORAL
     Route: 048
  2. ZIPRASIDONE (NGX) (ZIPRASIDONE) [Suspect]
     Indication: SCHIZOAFFECTIVE DISORDER
     Dosage: 5920 MG, ORAL
     Route: 048
  3. BUPROPION (NGX) (BUPROPION) [Suspect]
     Indication: SCHIZOAFFECTIVE DISORDER
     Dosage: 15700 MG (PROBABLY FEWER), ORAL
     Route: 048
  4. FLUOXETINE [Suspect]
     Indication: SCHIZOAFFECTIVE DISORDER
     Dosage: 72 G, ORAL
     Route: 048

REACTIONS (10)
  - BUNDLE BRANCH BLOCK LEFT [None]
  - CARDIOVASCULAR DISORDER [None]
  - DISORIENTATION [None]
  - ELECTROCARDIOGRAM QT CORRECTED INTERVAL PROLONGED [None]
  - GRAND MAL CONVULSION [None]
  - INTENTIONAL MISUSE [None]
  - LETHARGY [None]
  - MEDICATION ERROR [None]
  - OVERDOSE [None]
  - SUPRAVENTRICULAR TACHYCARDIA [None]
